FAERS Safety Report 7459452-5 (Version None)
Quarter: 2011Q2

REPORT INFORMATION
  Report Type: 
  Country: None (occurrence: None)
  Receive Date: 20110505
  Receipt Date: 20100618
  Transmission Date: 20111010
  Serious: Yes (Other)
  Sender: FDA-Public Use
  Company Number: US-PFIZER INC-2010076959

PATIENT
  Sex: Female
  Weight: 63.039 kg

DRUGS (3)
  1. TOPROL-XL [Suspect]
     Indication: HYPERTENSION
     Dosage: 150 MG, 1X/DAY
     Route: 048
     Dates: start: 20050101, end: 20100101
  2. CALAN [Suspect]
     Indication: HYPERTENSION
     Dosage: UNK
     Route: 048
     Dates: start: 19820101, end: 20090701
  3. COZAAR [Suspect]
     Indication: HYPERTENSION
     Dosage: 100 MG, 1X/DAY
     Route: 048
     Dates: start: 20000101

REACTIONS (3)
  - PALPITATIONS [None]
  - BLOOD CHOLESTEROL INCREASED [None]
  - DYSPNOEA [None]
